FAERS Safety Report 21230569 (Version 1)
Quarter: 2022Q3

REPORT INFORMATION
  Report Type: Spontaneous
  Country: FR (occurrence: FR)
  Receive Date: 20220818
  Receipt Date: 20220818
  Transmission Date: 20221026
  Serious: Yes (Hospitalization)
  Sender: FDA-Public Use
  Company Number: FR-SUN PHARMACEUTICAL INDUSTRIES LTD-2022RR-349364

PATIENT
  Age: 62 Year
  Sex: Male
  Weight: 79 kg

DRUGS (5)
  1. CLARITHROMYCIN [Suspect]
     Active Substance: CLARITHROMYCIN
     Indication: Lower respiratory tract infection
     Dosage: 1000 MILLIGRAM, DAILY
     Route: 048
     Dates: start: 20220119, end: 20220126
  2. ESOMEPRAZOLE [Suspect]
     Active Substance: ESOMEPRAZOLE
     Indication: Lower respiratory tract infection
     Dosage: 2 DOSAGE FORM, DAILY
     Route: 048
     Dates: start: 20220120, end: 20220127
  3. ESCARGOT [Suspect]
     Active Substance: ESCARGOT
     Indication: Cough
     Dosage: 3 DOSAGE FORM, DAILY
     Route: 048
     Dates: start: 20220120, end: 20220127
  4. POLERY ADULTE [Suspect]
     Active Substance: CODEINE\SISYMBRIUM OFFICINALE WHOLE
     Indication: Lower respiratory tract infection
     Dosage: 2 DOSAGE FORM, DAILY
     Route: 048
     Dates: start: 20220119, end: 20220127
  5. PREDNISOLONE SODIUM METAZOATE [Suspect]
     Active Substance: PREDNISOLONE SODIUM METAZOATE
     Indication: Lower respiratory tract infection
     Dosage: 20 MILLIGRAM, DAILY
     Route: 048
     Dates: start: 20220119, end: 20220124

REACTIONS (1)
  - Pancreatitis acute [Recovering/Resolving]

NARRATIVE: CASE EVENT DATE: 20220127
